FAERS Safety Report 4388843-4 (Version None)
Quarter: 2004Q2

REPORT INFORMATION
  Report Type: 
  Country: None (occurrence: None)
  Receive Date: 20040624
  Receipt Date: 20040614
  Transmission Date: 20050107
  Serious: Yes (Disabling, Other)
  Sender: FDA-Public Use
  Company Number: 2002-02-0130

PATIENT
  Age: 70 Year
  Sex: Male
  Weight: 84 kg

DRUGS (9)
  1. EULEXIN [Suspect]
     Indication: PROSTATE CANCER
     Dosage: SEE IMAGE
     Route: 048
     Dates: start: 20010822, end: 20020122
  2. EULEXIN [Suspect]
     Indication: PROSTATE CANCER
     Dosage: SEE IMAGE
     Route: 048
     Dates: start: 20020122, end: 20020127
  3. EULEXIN [Suspect]
     Indication: PROSTATE CANCER
     Dosage: SEE IMAGE
     Route: 048
     Dates: start: 20020128, end: 20020130
  4. EULEXIN [Suspect]
     Indication: PROSTATE CANCER
     Dosage: SEE IMAGE
     Route: 048
     Dates: start: 20010822
  5. EULEXIN [Suspect]
     Indication: PROSTATE CANCER
     Dosage: SEE IMAGE
     Route: 048
     Dates: start: 20020131
  6. LEUPROLIDE ACETATE [Concomitant]
  7. ZYLORIC (ALLOPURINOL) TABLETS [Concomitant]
  8. INHIBACE PLUS (CILAZAPRIL/HYDROCHLOROTHIAZIDE) TABELTS [Concomitant]
  9. ASPIRINA [Concomitant]

REACTIONS (3)
  - ABASIA [None]
  - DRUG INEFFECTIVE [None]
  - DYSPNOEA EXERTIONAL [None]
